FAERS Safety Report 9691584 (Version 1)
Quarter: 2013Q4

REPORT INFORMATION
  Report Type: Spontaneous
  Country: FR (occurrence: FR)
  Receive Date: 20131115
  Receipt Date: 20131115
  Transmission Date: 20140711
  Serious: Yes (Hospitalization, Other)
  Sender: FDA-Public Use
  Company Number: CHPA2013FR017186

PATIENT
  Age: 3 Year
  Sex: Male

DRUGS (3)
  1. SCOPODERM TTS [Suspect]
     Dosage: 1 DF, Q72H
     Route: 061
     Dates: start: 20130710, end: 20130914
  2. KEPPRA [Concomitant]
     Dosage: 300 MG, BID
     Dates: start: 20130429
  3. CLOBAZAM [Concomitant]
     Dosage: 5 MG, BID
     Dates: start: 201308

REACTIONS (4)
  - Convulsion [Recovered/Resolved]
  - Condition aggravated [Recovered/Resolved]
  - Incorrect dose administered [Unknown]
  - Overdose [Unknown]
